FAERS Safety Report 21753159 (Version 1)
Quarter: 2022Q4

REPORT INFORMATION
  Report Type: Spontaneous
  Country: US (occurrence: US)
  Receive Date: 20221220
  Receipt Date: 20221220
  Transmission Date: 20230113
  Serious: No
  Sender: FDA-Public Use
  Company Number: US-CELLTRION INC.-2022US001360

PATIENT

DRUGS (2)
  1. TRUXIMA [Suspect]
     Active Substance: RITUXIMAB-ABBS
     Indication: Scoliosis
     Dosage: 375MG PER M2 WEEKLY TIMES 4
     Route: 042
     Dates: start: 20220128
  2. TRUXIMA [Suspect]
     Active Substance: RITUXIMAB-ABBS
     Indication: Granulomatosis with polyangiitis
     Dosage: 375MG PER M2 WEEKLY TIMES 4
     Route: 042
     Dates: start: 20220204

REACTIONS (4)
  - Throat irritation [Unknown]
  - Oral pruritus [Unknown]
  - Scoliosis [Unknown]
  - Off label use [Unknown]
